FAERS Safety Report 8131648-9 (Version None)
Quarter: 2012Q1

REPORT INFORMATION
  Report Type: 
  Country: None (occurrence: None)
  Receive Date: 20120103
  Receipt Date: 20110828
  Transmission Date: 20120608
  Serious: No
  Sender: FDA-Public Use
  Company Number: AE-2011-001164

PATIENT
  Age: 45 Year
  Sex: Female

DRUGS (8)
  1. SOMA [Concomitant]
  2. DEXILANT (ANTACIDS) [Concomitant]
  3. VITAMIN D [Concomitant]
  4. REBETOL [Concomitant]
  5. DILAUDID [Concomitant]
  6. ZYRTEC [Concomitant]
  7. INCIVEK [Suspect]
     Dosage: (3 IN 1 D),ORAL
     Route: 048
     Dates: start: 20110806
  8. PEGINTERFERON (PEGINTERFERON ALFA-2A) [Concomitant]

REACTIONS (3)
  - DRY EYE [None]
  - CANDIDIASIS [None]
  - ANAL HAEMORRHAGE [None]
